FAERS Safety Report 21696160 (Version 1)
Quarter: 2022Q4

REPORT INFORMATION
  Report Type: Spontaneous
  Country: US (occurrence: None)
  Receive Date: 20221207
  Receipt Date: 20221207
  Transmission Date: 20230112
  Serious: Yes (Hospitalization)
  Sender: FDA-Public Use
  Company Number: None

PATIENT
  Age: 52 Year
  Sex: Female

DRUGS (9)
  1. REBIF REBIDOSE [Suspect]
     Active Substance: INTERFERON BETA-1A
     Indication: Multiple sclerosis
     Dosage: 22 MCG/0.5ML??INJECT 1 PEN UNDER THE SKIN (SUBCUTANEOUS INJECTION) THREE TIMES PER WEEK PREFERABLY
     Route: 058
  2. REBIF REBIDOSE [Suspect]
     Active Substance: INTERFERON BETA-1A
     Dosage: OTHER QUANTITY : 1 PEN;?FREQUENCY : 3 TIMES A WEEK;?
     Route: 058
  3. GABAPENTIN [Concomitant]
     Active Substance: GABAPENTIN
  4. LEVOXYL [Concomitant]
     Active Substance: LEVOTHYROXINE SODIUM
  5. LIOTHYRONINE [Concomitant]
  6. MODAFINIL [Concomitant]
     Active Substance: MODAFINIL
  7. VITAMIN B12 [Concomitant]
     Active Substance: CYANOCOBALAMIN
  8. VITAMIN D [Concomitant]
     Active Substance: VITAMIN D NOS
  9. VITAMIN D3 [Concomitant]
     Active Substance: CHOLECALCIFEROL

REACTIONS (2)
  - Therapy interrupted [None]
  - COVID-19 [None]

NARRATIVE: CASE EVENT DATE: 20221206
